FAERS Safety Report 7833043-6 (Version None)
Quarter: 2011Q4

REPORT INFORMATION
  Report Type: 
  Country: None (occurrence: None)
  Receive Date: 20111024
  Receipt Date: 20111011
  Transmission Date: 20120403
  Serious: Yes (Hospitalization, Other)
  Sender: FDA-Public Use
  Company Number: JP-RANBAXY-2011RR-49134

PATIENT
  Age: 70 Year
  Sex: Male

DRUGS (2)
  1. ETODOLAC [Suspect]
     Indication: BACK PAIN
     Dosage: 400 MG/DAY
     Route: 065
  2. MEROPENEM [Concomitant]
     Indication: STREPTOCOCCAL INFECTION
     Dosage: UNK
     Route: 042

REACTIONS (1)
  - ACUTE GENERALISED EXANTHEMATOUS PUSTULOSIS [None]
